FAERS Safety Report 8605672 (Version 3)
Quarter: 2012Q4

REPORT INFORMATION
  Report Type: Report from Study
  Country: US (occurrence: US)
  Receive Date: 20120608
  Receipt Date: 20121102
  Transmission Date: 20130627
  Serious: Yes (Hospitalization)
  Sender: FDA-Public Use
  Company Number: US-JNJFOC-20120601767

PATIENT
  Age: 15 Year
  Sex: Female
  Weight: 45.9 kg

DRUGS (8)
  1. REMICADE [Suspect]
     Indication: CROHN^S DISEASE
     Route: 042
     Dates: start: 20120105
  2. REMICADE [Suspect]
     Indication: INFLAMMATORY BOWEL DISEASE
     Route: 042
     Dates: start: 20120105
  3. FERROUS GLUCONATE [Concomitant]
  4. METHOTREXATE [Concomitant]
  5. FOLIC ACID [Concomitant]
  6. 5-ASA [Concomitant]
     Route: 048
  7. 5-ASA [Concomitant]
     Route: 054
  8. PREDNISONE [Concomitant]

REACTIONS (1)
  - Crohn^s disease [Recovered/Resolved]
